FAERS Safety Report 13668970 (Version 1)
Quarter: 2017Q2

REPORT INFORMATION
  Report Type: Spontaneous
  Country: JP (occurrence: JP)
  Receive Date: 20170620
  Receipt Date: 20170620
  Transmission Date: 20170830
  Serious: Yes (Death, Hospitalization)
  Sender: FDA-Public Use
  Company Number: JP-PFIZER INC-2017027319

PATIENT
  Age: 78 Year
  Sex: Male
  Weight: 42 kg

DRUGS (18)
  1. ALOXI [Concomitant]
     Active Substance: PALONOSETRON HYDROCHLORIDE
     Dosage: UNK
     Dates: start: 20140924, end: 20140924
  2. FAMOTIDINE DCI [Concomitant]
     Active Substance: FAMOTIDINE
     Dosage: UNK
     Dates: start: 20141001
  3. LIPITOR [Concomitant]
     Active Substance: ATORVASTATIN CALCIUM
     Dosage: UNK
  4. ZANTAC [Concomitant]
     Active Substance: RANITIDINE HYDROCHLORIDE
     Dosage: UNK
  5. EMEND [Concomitant]
     Active Substance: APREPITANT
     Dosage: UNK
     Dates: start: 20140924, end: 20140926
  6. RESTAMIN [Concomitant]
     Active Substance: DIPHENHYDRAMINE
     Dosage: UNK
  7. CAMPTO [Suspect]
     Active Substance: IRINOTECAN
     Indication: PANCREATIC CARCINOMA
     Dosage: 150 MG/M2, 1X/DAY (216.6 MG/BODY)
     Route: 041
     Dates: start: 20140924, end: 20140924
  8. ELPLAT [Suspect]
     Active Substance: OXALIPLATIN
     Indication: PANCREATIC CARCINOMA
     Dosage: 85 MG/M2, 1X/DAY (122.7 MG/BODY)
     Route: 041
     Dates: start: 20140924, end: 20140924
  9. 5-FU /00098801/ [Suspect]
     Active Substance: FLUOROURACIL
     Indication: PANCREATIC CARCINOMA
     Dosage: 2400 MG/M2, D1-D2 (3465.6 MG/BODY/D1-2)
     Route: 041
     Dates: start: 20140924, end: 20140924
  10. FILGRASTIM [Concomitant]
     Active Substance: FILGRASTIM
     Dosage: UNK
     Dates: start: 20141006, end: 20141007
  11. DEXART [Concomitant]
     Active Substance: DEXAMETHASONE SODIUM PHOSPHATE
     Dosage: UNK
     Dates: start: 20140924, end: 20140924
  12. DECADRON [Concomitant]
     Active Substance: DEXAMETHASONE
     Dosage: UNK
     Dates: start: 20140925, end: 20140926
  13. LIPACREON [Concomitant]
     Active Substance: PANCRELIPASE
     Dosage: UNK
     Dates: start: 20141001
  14. URSODEOXYCHOLIC ACID [Concomitant]
     Active Substance: URSODIOL
     Dosage: UNK
     Dates: start: 20141001
  15. LEVOFOLINATE [Suspect]
     Active Substance: LEVOLEUCOVORIN CALCIUM
     Indication: PANCREATIC CARCINOMA
     Dosage: 200 MG/M2, 1X/DAY (288.8 MG/BODY)
     Route: 041
     Dates: start: 20140924, end: 20140924
  16. MAGLAX [Concomitant]
     Active Substance: MAGNESIUM OXIDE
     Dosage: UNK
     Dates: start: 20140926
  17. MAXIPIME [Concomitant]
     Active Substance: CEFEPIME HYDROCHLORIDE
     Dosage: UNK
     Dates: start: 20141006, end: 20141007
  18. INOVAN [Concomitant]
     Active Substance: DOPAMINE HYDROCHLORIDE
     Dosage: UNK
     Dates: start: 20141006, end: 20141007

REACTIONS (6)
  - Neutrophil count decreased [Fatal]
  - Septic shock [Fatal]
  - White blood cell count decreased [Fatal]
  - Decreased appetite [Not Recovered/Not Resolved]
  - Platelet count decreased [Fatal]
  - Dehydration [Not Recovered/Not Resolved]

NARRATIVE: CASE EVENT DATE: 20141006
